FAERS Safety Report 9277949 (Version 3)
Quarter: 2013Q3

REPORT INFORMATION
  Report Type: Spontaneous
  Country: US (occurrence: US)
  Receive Date: 20130508
  Receipt Date: 20130807
  Transmission Date: 20140515
  Serious: No
  Sender: FDA-Public Use
  Company Number: US-BIOGENIDEC-2013BI040935

PATIENT
  Age: 49 Year
  Sex: Male

DRUGS (8)
  1. TYSABRI [Suspect]
     Indication: MULTIPLE SCLEROSIS
     Route: 042
     Dates: start: 20120723, end: 20130711
  2. WELLBUTRIN [Concomitant]
     Indication: DEPRESSION
  3. ZOCOR [Concomitant]
     Indication: BLOOD CHOLESTEROL INCREASED
  4. LOPRESSOR [Concomitant]
     Indication: HYPERTENSION
  5. GABAPENTIN [Concomitant]
     Indication: RESTLESS LEGS SYNDROME
  6. NITROGLYCERIN [Concomitant]
     Indication: CHEST PAIN
  7. IBUPROFEN [Concomitant]
     Indication: MYOSITIS
  8. FLOMAX [Concomitant]
     Indication: PROSTATOMEGALY

REACTIONS (23)
  - Diarrhoea [Not Recovered/Not Resolved]
  - Gait disturbance [Not Recovered/Not Resolved]
  - Dysarthria [Recovered/Resolved]
  - Decreased appetite [Not Recovered/Not Resolved]
  - Memory impairment [Not Recovered/Not Resolved]
  - Weight decreased [Not Recovered/Not Resolved]
  - Vision blurred [Not Recovered/Not Resolved]
  - Depression [Not Recovered/Not Resolved]
  - Urine output decreased [Not Recovered/Not Resolved]
  - Blood cholesterol increased [Unknown]
  - Cough [Not Recovered/Not Resolved]
  - Prostatomegaly [Unknown]
  - Sinus disorder [Not Recovered/Not Resolved]
  - Restless legs syndrome [Unknown]
  - Anxiety [Unknown]
  - Somnolence [Not Recovered/Not Resolved]
  - White blood cell count increased [Unknown]
  - Hypotension [Not Recovered/Not Resolved]
  - Hypoaesthesia [Recovered/Resolved]
  - Hypertension [Not Recovered/Not Resolved]
  - Constipation [Not Recovered/Not Resolved]
  - Fatigue [Not Recovered/Not Resolved]
  - Arthralgia [Recovered/Resolved]
